FAERS Safety Report 17541813 (Version 1)
Quarter: 2020Q1

REPORT INFORMATION
  Report Type: Spontaneous
  Country: US (occurrence: US)
  Receive Date: 20200313
  Receipt Date: 20200313
  Transmission Date: 20200409
  Serious: No
  Sender: FDA-Public Use
  Company Number: US-ALMIRALL, LLC-2019AQU000615

PATIENT

DRUGS (2)
  1. ACZONE [Suspect]
     Active Substance: DAPSONE
     Indication: ACNE
     Route: 061
  2. CLINDAMYCIN AND BENZOYL PEROXIDE [Concomitant]
     Active Substance: BENZOYL PEROXIDE\CLINDAMYCIN PHOSPHATE
     Indication: ACNE

REACTIONS (5)
  - Hypersensitivity [Recovering/Resolving]
  - Pruritus [Unknown]
  - Periorbital swelling [Recovered/Resolved]
  - Dry skin [Not Recovered/Not Resolved]
  - Swelling of eyelid [Recovered/Resolved]

NARRATIVE: CASE EVENT DATE: 201911
